FAERS Safety Report 8157670-4 (Version None)
Quarter: 2012Q1

REPORT INFORMATION
  Report Type: 
  Country: None (occurrence: None)
  Receive Date: 20120222
  Receipt Date: 20120219
  Transmission Date: 20120608
  Serious: Yes (Other)
  Sender: FDA-Public Use
  Company Number: US-PFIZER INC-2012043954

PATIENT
  Sex: Female
  Weight: 90.703 kg

DRUGS (8)
  1. NEURONTIN [Suspect]
     Indication: FIBROMYALGIA
     Dosage: UNK
  2. NAPROXEN (ALEVE) [Suspect]
     Dosage: UNK
     Route: 048
  3. PROZAC [Suspect]
     Indication: BIPOLAR DISORDER
  4. OXYCODONE HCL [Suspect]
     Indication: FIBROMYALGIA
     Dosage: UNK
  5. PROZAC [Suspect]
     Indication: DEPRESSION
     Dosage: 20 MG, UNK
  6. LISINOPRIL AND HYDROCHLOROTHIAZIDE [Concomitant]
     Indication: BLOOD PRESSURE ABNORMAL
     Dosage: 20/12.5 MG, DAILY
     Route: 048
  7. METHADONE HCL [Suspect]
     Indication: FIBROMYALGIA
     Dosage: 40 MG, 1X/DAY
     Route: 048
  8. METHADONE HCL [Suspect]
     Dosage: 20+5 MG DAILY
     Route: 048

REACTIONS (7)
  - DRUG ADMINISTRATION ERROR [None]
  - MALAISE [None]
  - DRUG INEFFECTIVE [None]
  - ABDOMINAL DISCOMFORT [None]
  - POLYP [None]
  - ARTHRALGIA [None]
  - BIPOLAR DISORDER [None]
